FAERS Safety Report 8578149-1 (Version None)
Quarter: 2012Q3

REPORT INFORMATION
  Report Type: 
  Country: None (occurrence: None)
  Receive Date: 20120808
  Receipt Date: 20120731
  Transmission Date: 20120928
  Serious: Yes (Hospitalization, Other)
  Sender: FDA-Public Use
  Company Number: US-BAYER-2011-038349

PATIENT
  Age: 32 Year
  Sex: Female
  Weight: 154 kg

DRUGS (20)
  1. LEVAQUIN [Concomitant]
  2. COLESTID [Concomitant]
  3. ZITHROMAX [Concomitant]
     Route: 048
  4. HYDROCODONE BITARTRATE AND ACETAMINOPHEN [Concomitant]
     Route: 048
  5. KEFLEX [Concomitant]
  6. ZITHROMAX [Concomitant]
  7. YASMIN [Suspect]
     Indication: ACNE
  8. CIPRO XR [Concomitant]
     Indication: URINARY TRACT INFECTION
  9. ATIVAN [Concomitant]
     Dosage: 1 MG, Q4HR AS NEEDED
  10. LORAZEPAM [Concomitant]
     Dosage: 1 MG, UNK
     Route: 048
     Dates: start: 20040413
  11. YASMIN [Suspect]
     Indication: ORAL CONTRACEPTION
     Dosage: UNK
     Dates: start: 20030101, end: 20040101
  12. HUMIBID DM [Concomitant]
     Route: 048
  13. LORTAB [Concomitant]
  14. PREVACID [Concomitant]
  15. BIAXIN XL [Concomitant]
  16. YASMIN [Suspect]
     Indication: PREMENSTRUAL SYNDROME
  17. TUSSIONEX [Concomitant]
     Route: 048
  18. AMBIEN [Concomitant]
     Dosage: 10 MG, UNK
     Route: 048
  19. PROMETHAZINE [Concomitant]
     Route: 048
  20. BEXTRA [Concomitant]

REACTIONS (10)
  - GALLBLADDER DISORDER [None]
  - THROMBOSIS [None]
  - PAIN [None]
  - DEEP VEIN THROMBOSIS [None]
  - ANXIETY [None]
  - QUALITY OF LIFE DECREASED [None]
  - SPLENIC INFARCTION [None]
  - FEAR [None]
  - INJURY [None]
  - ANHEDONIA [None]
